FAERS Safety Report 5799348-8 (Version None)
Quarter: 2008Q3

REPORT INFORMATION
  Report Type: 
  Country: None (occurrence: None)
  Receive Date: 20080702
  Receipt Date: 20080623
  Transmission Date: 20090109
  Serious: Yes (Other)
  Sender: FDA-Public Use
  Company Number: JP-PFIZER INC-2008053202

PATIENT
  Age: 12 Year
  Sex: Male

DRUGS (2)
  1. SALAZOPYRIN [Suspect]
     Indication: COLITIS ULCERATIVE
     Route: 048
  2. MESALAMINE [Suspect]
     Indication: COLITIS ULCERATIVE
     Route: 048

REACTIONS (1)
  - COLITIS ULCERATIVE [None]
